FAERS Safety Report 17364708 (Version 3)
Quarter: 2020Q2

REPORT INFORMATION
  Report Type: Spontaneous
  Country: ES (occurrence: ES)
  Receive Date: 20200204
  Receipt Date: 20200508
  Transmission Date: 20200713
  Serious: Yes (Death, Other)
  Sender: FDA-Public Use
  Company Number: ES-AUROBINDO-AUR-APL-2020-004234

PATIENT
  Age: 52 Year
  Sex: Male

DRUGS (4)
  1. SOFOSBUVIR [Suspect]
     Active Substance: SOFOSBUVIR
     Indication: HEPATITIS E
     Dosage: 400 MILLIGRAM, ONCE A DAY
     Route: 065
  2. RIBAVIRIN. [Suspect]
     Active Substance: RIBAVIRIN
     Indication: HEPATITIS E
     Dosage: 800 MILLIGRAM/KILOGRAM
     Route: 065
  3. RIBAVIRIN. [Suspect]
     Active Substance: RIBAVIRIN
     Dosage: 800 MILLIGRAM/KILOGRAM
     Route: 065
  4. RIBAVIRIN. [Suspect]
     Active Substance: RIBAVIRIN
     Dosage: 1200 MILLIGRAM, ONCE A DAY
     Route: 065

REACTIONS (3)
  - Treatment failure [Unknown]
  - Off label use [Recovered/Resolved]
  - Drug ineffective for unapproved indication [Fatal]
